FAERS Safety Report 7635450 (Version 3)
Quarter: 2013Q1

REPORT INFORMATION
  Report Type: Spontaneous
  Country: US (occurrence: US)
  Receive Date: 20101020
  Receipt Date: 20130101
  Transmission Date: 20140127
  Serious: Yes (Other)
  Sender: FDA-Public Use
  Company Number: PHEH2008US11943

PATIENT
  Sex: Female

DRUGS (6)
  1. AREDIA [Suspect]
     Indication: BREAST CANCER
     Dosage: 90 MG, QMO
     Route: 042
     Dates: start: 199810, end: 20020315
  2. TAMOXIFEN [Concomitant]
  3. FOLIC ACID [Concomitant]
  4. COUMADIN [Concomitant]
  5. QUININE [Concomitant]
  6. ALLEGRA [Concomitant]

REACTIONS (15)
  - Venous thrombosis [Unknown]
  - Subclavian vein thrombosis [Unknown]
  - Local swelling [Unknown]
  - Neck pain [Unknown]
  - Venous pressure jugular increased [Unknown]
  - Thyroid mass [Unknown]
  - Chest wall mass [Unknown]
  - Deafness neurosensory [Unknown]
  - Lymphoedema [Unknown]
  - Hyperlipidaemia [Unknown]
  - Keratitis [Unknown]
  - Thrombophlebitis [Unknown]
  - Inner ear disorder [Unknown]
  - Otosclerosis [Unknown]
  - Deafness [Unknown]
